FAERS Safety Report 7537815-7 (Version None)
Quarter: 2011Q2

REPORT INFORMATION
  Report Type: 
  Country: None (occurrence: None)
  Receive Date: 20110609
  Receipt Date: 20110603
  Transmission Date: 20111010
  Serious: Yes (Hospitalization, Other)
  Sender: FDA-Public Use
  Company Number: US-ABBOTT-11P-163-0730594-00

PATIENT
  Sex: Female
  Weight: 81.72 kg

DRUGS (10)
  1. NORVASC [Concomitant]
     Indication: HYPERTENSION
     Route: 048
     Dates: start: 20020101
  2. PREMARIN [Concomitant]
     Indication: MENOPAUSE
     Dates: start: 19800101
  3. CELEXA [Concomitant]
     Indication: DEPRESSION
  4. DIFLUCAN [Concomitant]
     Indication: PRODUCT USED FOR UNKNOWN INDICATION
  5. HUMIRA [Suspect]
     Indication: CROHN'S DISEASE
     Route: 058
     Dates: start: 20080512
  6. ELAVIL [Concomitant]
     Indication: DEPRESSION
     Dosage: AT BEDTIME
  7. TEKTURNA [Concomitant]
     Indication: HYPERTENSION
  8. SYNTHROID [Concomitant]
     Indication: HYPOTHYROIDISM
     Route: 048
     Dates: start: 19950101
  9. RHINOCORT [Concomitant]
     Indication: ALLERGIC SINUSITIS
     Dosage: 1 PUFF EACH NOSTRIL DAILY
     Route: 045
  10. OXYCONTIN [Concomitant]
     Indication: PAIN
     Route: 048

REACTIONS (6)
  - BLOOD SODIUM DECREASED [None]
  - GASTROENTERITIS [None]
  - ADRENAL INSUFFICIENCY [None]
  - ADDISON'S DISEASE [None]
  - INFLUENZA LIKE ILLNESS [None]
  - MUSCLE SPASMS [None]
